FAERS Safety Report 20041919 (Version 1)
Quarter: 2021Q4

REPORT INFORMATION
  Report Type: Report from Study
  Country: US (occurrence: US)
  Receive Date: 20211108
  Receipt Date: 20211108
  Transmission Date: 20220303
  Serious: Yes (Hospitalization, Other)
  Sender: FDA-Public Use
  Company Number: US-TAKEDA-US201817209

PATIENT
  Age: 77 Year
  Sex: Female

DRUGS (1)
  1. HUMAN IMMUNOGLOBULIN G [Suspect]
     Active Substance: HUMAN IMMUNOGLOBULIN G
     Indication: Primary immunodeficiency syndrome
     Dosage: 11 GRAM, 1/WEEK
     Route: 065

REACTIONS (6)
  - Pneumonia [Unknown]
  - Infusion site erythema [Unknown]
  - Infusion site irritation [Unknown]
  - Infusion site extravasation [Unknown]
  - Arthropathy [Unknown]
  - Back disorder [Unknown]

NARRATIVE: CASE EVENT DATE: 20180502
